FAERS Safety Report 24237385 (Version 1)
Quarter: 2024Q3

REPORT INFORMATION
  Report Type: Spontaneous
  Country: US (occurrence: US)
  Receive Date: 20240822
  Receipt Date: 20240822
  Transmission Date: 20241017
  Serious: Yes (Other)
  Sender: MANKIND PHARMA
  Company Number: US-MankindUS-000236

PATIENT

DRUGS (1)
  1. HALOPERIDOL DECANOATE [Suspect]
     Active Substance: HALOPERIDOL DECANOATE
     Indication: Agitation
     Route: 030

REACTIONS (2)
  - Electrocardiogram ST segment elevation [Unknown]
  - Electrocardiogram PR segment depression [Unknown]
